FAERS Safety Report 4267220-0 (Version None)
Quarter: 2004Q1

REPORT INFORMATION
  Report Type: 
  Country: None (occurrence: None)
  Receive Date: 20040107
  Receipt Date: 20040105
  Transmission Date: 20041129
  Serious: Yes (Other)
  Sender: FDA-Public Use
  Company Number: 2003-12-1569

PATIENT
  Age: 40 Year
  Sex: Male

DRUGS (2)
  1. REBETOL [Suspect]
     Indication: HEPATITIS C
     Dosage: ORAL
     Route: 048
  2. INTRON A [Suspect]
     Indication: HEPATITIS C

REACTIONS (4)
  - BLOOD IMMUNOGLOBULIN A INCREASED [None]
  - COELIAC DISEASE [None]
  - DIABETES MELLITUS [None]
  - HEPATIC ENZYME INCREASED [None]
